FAERS Safety Report 10777300 (Version 1)
Quarter: 2015Q1

REPORT INFORMATION
  Report Type: Spontaneous
  Country: IT (occurrence: IT)
  Receive Date: 20150209
  Receipt Date: 20150209
  Transmission Date: 20150721
  Serious: Yes (Hospitalization)
  Sender: FDA-Public Use
  Company Number: PHHY2015IT013405

PATIENT
  Age: 36 Year
  Sex: Female

DRUGS (6)
  1. DROSPIRENONE+ETHINYLESTRADIOL [Suspect]
     Active Substance: DROSPIRENONE\ETHINYL ESTRADIOL
     Indication: CONTRACEPTION
     Route: 048
  2. LIDOCAINE. [Concomitant]
     Active Substance: LIDOCAINE
     Indication: OCCIPITAL NEURALGIA
     Route: 065
  3. KETOROLAC [Suspect]
     Active Substance: KETOROLAC\KETOROLAC TROMETHAMINE
     Indication: OCCIPITAL NEURALGIA
     Route: 030
  4. LEVOTHYROXINE [Concomitant]
     Active Substance: LEVOTHYROXINE
     Indication: HYPOTHYROIDISM
  5. DESAMETASONE [Concomitant]
     Active Substance: DEXAMETHASONE
     Indication: OCCIPITAL NEURALGIA
     Route: 065
  6. ATORVASTATIN [Concomitant]
     Active Substance: ATORVASTATIN
     Indication: VERTEBRAL ARTERY HYPOPLASIA
     Route: 065

REACTIONS (5)
  - Aphasia [Unknown]
  - Transverse sinus thrombosis [Unknown]
  - Subarachnoid haemorrhage [Unknown]
  - Haemorrhagic infarction [Unknown]
  - Disorientation [Unknown]
